FAERS Safety Report 6021269-6 (Version None)
Quarter: 2008Q4

REPORT INFORMATION
  Report Type: 
  Country: None (occurrence: None)
  Receive Date: 20081222
  Receipt Date: 20080825
  Transmission Date: 20090506
  Serious: No
  Sender: FDA-Public Use
  Company Number: US200808005154

PATIENT
  Sex: Female

DRUGS (1)
  1. HUMALOG PEN [Suspect]

REACTIONS (3)
  - ACCIDENTAL NEEDLE STICK [None]
  - ANXIETY [None]
  - TREMOR [None]
